FAERS Safety Report 15669116 (Version 2)
Quarter: 2019Q2

REPORT INFORMATION
  Report Type: Report from Study
  Country: GB (occurrence: GB)
  Receive Date: 20181129
  Receipt Date: 20190429
  Transmission Date: 20190711
  Serious: Yes (Other)
  Sender: FDA-Public Use
  Company Number: GB-ACCORD-093855

PATIENT
  Sex: Male

DRUGS (2)
  1. CISPLATIN. [Suspect]
     Active Substance: CISPLATIN
     Indication: NON-SMALL CELL LUNG CANCER
     Dosage: FOUR WEEKS AFTER COMPLETION OF THE?CONCOMITANT PHASE, TWO MORE CYCLES OF CISPLATIN (80 MG/M2 DAY 1)
     Route: 042
  2. VINORELBINE [Suspect]
     Active Substance: VINORELBINE\VINORELBINE TARTRATE
     Indication: NON-SMALL CELL LUNG CANCER
     Dosage: ALSO RECEIVED (25 MG/M2 DAYS 1 AND 8)ON THE DAY OF FRACTIONS 1, 6, 15 AND 20
     Route: 042

REACTIONS (1)
  - Oesophagitis [Unknown]
